FAERS Safety Report 14247734 (Version 3)
Quarter: 2018Q1

REPORT INFORMATION
  Report Type: Spontaneous
  Country: DE (occurrence: DE)
  Receive Date: 20171204
  Receipt Date: 20180205
  Transmission Date: 20180508
  Serious: Yes (Death, Hospitalization, Other)
  Sender: FDA-Public Use
  Company Number: DE-ACTELION-A-CH2017-162329

PATIENT
  Age: 6 Year
  Sex: Female
  Weight: 19.3 kg

DRUGS (5)
  1. UPTRAVI [Suspect]
     Active Substance: SELEXIPAG
     Indication: PULMONARY ARTERIAL HYPERTENSION
     Dosage: 600 ?G, BID
     Route: 048
     Dates: start: 20171110
  2. UPTRAVI [Suspect]
     Active Substance: SELEXIPAG
     Dosage: 200 ?G, BID
     Route: 048
     Dates: start: 20171026
  3. REVATIO [Concomitant]
     Active Substance: SILDENAFIL CITRATE
     Indication: PULMONARY HYPERTENSION
     Dosage: 15 MG, TID
     Route: 048
     Dates: start: 20160302
  4. UPTRAVI [Suspect]
     Active Substance: SELEXIPAG
     Dosage: 400 ?G, BID
     Route: 048
     Dates: start: 20171101
  5. TRACLEER [Concomitant]
     Active Substance: BOSENTAN
     Indication: PULMONARY HYPERTENSION
     Dosage: 32 MG, BID
     Route: 048
     Dates: start: 201603

REACTIONS (13)
  - Agitation [Fatal]
  - Loss of consciousness [Fatal]
  - Scarlet fever [Fatal]
  - Pulmonary hypertensive crisis [Fatal]
  - Tachypnoea [Fatal]
  - Right-to-left cardiac shunt [Unknown]
  - Cardiovascular insufficiency [Fatal]
  - Cardiac output decreased [Fatal]
  - Oxygen saturation decreased [Unknown]
  - Restlessness [Fatal]
  - Micturition disorder [Fatal]
  - Hypoxia [Fatal]
  - Bradycardia [Fatal]

NARRATIVE: CASE EVENT DATE: 20171117
